FAERS Safety Report 20212554 (Version 2)
Quarter: 2022Q1

REPORT INFORMATION
  Report Type: Report from Study
  Country: DE (occurrence: DE)
  Receive Date: 20211221
  Receipt Date: 20220110
  Transmission Date: 20220423
  Serious: Yes (Hospitalization, Other)
  Sender: FDA-Public Use
  Company Number: DE-002147023-NVSC2020DE167375

PATIENT
  Age: 81 Year
  Sex: Male

DRUGS (32)
  1. TORSEMIDE [Suspect]
     Active Substance: TORSEMIDE
     Indication: Hypertension
     Dosage: 5 MILLIGRAM, QD (5 MG, QD)
     Route: 048
     Dates: end: 20200417
  2. TORSEMIDE [Suspect]
     Active Substance: TORSEMIDE
     Indication: Oedema peripheral
     Dosage: 5 MILLIGRAM, QD (5 MG, QD)
     Route: 048
     Dates: start: 20200425, end: 20200619
  3. TORSEMIDE [Suspect]
     Active Substance: TORSEMIDE
     Dosage: 20 MILLIGRAM (20 MG)
     Route: 048
     Dates: start: 20201202, end: 202101
  4. TORSEMIDE [Suspect]
     Active Substance: TORSEMIDE
     Dosage: 5 MILLIGRAM, QD (5 MG, QD)
     Route: 048
     Dates: start: 202102, end: 202107
  5. TORSEMIDE [Suspect]
     Active Substance: TORSEMIDE
     Dosage: 10 MILLIGRAM, QD (10 MG, QD)
     Route: 048
     Dates: start: 202006, end: 20201201
  6. TORSEMIDE [Suspect]
     Active Substance: TORSEMIDE
     Dosage: 15 MILLIGRAM, QD (15 MG, QD)
     Route: 048
     Dates: start: 202012, end: 202101
  7. TORSEMIDE [Suspect]
     Active Substance: TORSEMIDE
     Dosage: 5 MILLIGRAM, QD (5 MG, QD)
     Route: 048
     Dates: start: 20200425, end: 20200619
  8. TORSEMIDE [Suspect]
     Active Substance: TORSEMIDE
     Dosage: 40 MILLIGRAM, QD (20 MG, BID)
     Route: 048
     Dates: start: 20201202, end: 202012
  9. TORSEMIDE [Suspect]
     Active Substance: TORSEMIDE
     Dosage: 20 MILLIGRAM, QD, 10 MG, BID
     Route: 048
     Dates: start: 202108
  10. TORSEMIDE [Suspect]
     Active Substance: TORSEMIDE
     Dosage: 20 MILLIGRAM, QD
     Route: 048
     Dates: start: 202012, end: 202101
  11. RUXOLITINIB [Suspect]
     Active Substance: RUXOLITINIB
     Indication: Polycythaemia vera
     Dosage: 40 MILLIGRAM, QD (20 MG, BID)
     Route: 048
     Dates: start: 20191209, end: 20200927
  12. RUXOLITINIB [Suspect]
     Active Substance: RUXOLITINIB
     Dosage: 20 MILLIGRAM, QD (10 MG, BID)
     Route: 048
     Dates: start: 20200928, end: 20210707
  13. RUXOLITINIB [Suspect]
     Active Substance: RUXOLITINIB
     Dosage: 10 MILLIGRAM, QD, 10 MG, QD
     Route: 048
     Dates: start: 20210119, end: 20210803
  14. RUXOLITINIB [Suspect]
     Active Substance: RUXOLITINIB
     Dosage: 20 MILLIGRAM, QD, 10 MG, BID
     Route: 048
     Dates: start: 20200928, end: 20210118
  15. XIPAMIDE [Suspect]
     Active Substance: XIPAMIDE
     Indication: Oedema peripheral
     Dosage: 10 MILLIGRAM, QD
     Route: 048
     Dates: start: 20201130, end: 202101
  16. XIPAMIDE [Suspect]
     Active Substance: XIPAMIDE
     Indication: Hypertension
     Dosage: 10 MILLIGRAM, QD
     Route: 048
     Dates: start: 202108
  17. RAMIPRIL [Suspect]
     Active Substance: RAMIPRIL
     Indication: Product used for unknown indication
     Dosage: 2.5 MILLIGRAM (2.5 MG), START DATE:25-APR-2020
     Route: 048
     Dates: start: 20200425, end: 202101
  18. RAMIPRIL [Suspect]
     Active Substance: RAMIPRIL
     Dosage: 1.25 MILLIGRAM, QD (1.25 MG, QD)
     Route: 048
     Dates: start: 202101, end: 202107
  19. ALDACTONE [Concomitant]
     Active Substance: SPIRONOLACTONE
     Indication: Lymphoedema
     Dosage: 25 MILLIGRAM, QD (25 MG, QD)
     Route: 048
     Dates: end: 202007
  20. PANTOPRAZOLE SODIUM [Concomitant]
     Active Substance: PANTOPRAZOLE SODIUM
     Indication: Upper gastrointestinal haemorrhage
     Dosage: 80 MILLIGRAM, QD (40 MG, BID)
     Route: 048
     Dates: start: 201901, end: 202102
  21. PANTOPRAZOLE SODIUM [Concomitant]
     Active Substance: PANTOPRAZOLE SODIUM
     Dosage: 40 MILLIGRAM, QD (20 MG, BID)
     Route: 048
     Dates: start: 202102, end: 202107
  22. PANTOPRAZOLE SODIUM [Concomitant]
     Active Substance: PANTOPRAZOLE SODIUM
     Dosage: 80 MILLIGRAM, QD (40 MG, BID)
     Route: 048
     Dates: start: 202107
  23. ALLOPURINOL [Concomitant]
     Active Substance: ALLOPURINOL
     Indication: Hyperuricaemia
     Dosage: 100 MILLIGRAM, QD (100 MG, QD), START DATE: ??-FEB-2021
     Route: 048
     Dates: start: 202102, end: 202107
  24. ALLOPURINOL [Concomitant]
     Active Substance: ALLOPURINOL
     Dosage: 100 MILLIGRAM, QD, 100 MG, QD
     Route: 048
     Dates: start: 202108
  25. CHOLECALCIFEROL [Concomitant]
     Active Substance: CHOLECALCIFEROL
     Indication: Prophylaxis
     Dosage: 1000 INTERNATIONAL UNIT, QD (1000 IU, QD), START DATE:??-FEB-2021
     Route: 048
  26. CHOLECALCIFEROL [Concomitant]
     Active Substance: CHOLECALCIFEROL
     Dosage: 1000 INTERNATIONAL UNIT, QD (1000 IU, QD), START DATE:??-FEB-2021
     Route: 048
     Dates: start: 202102
  27. TORSEMIDE [Concomitant]
     Active Substance: TORSEMIDE
     Indication: Hypertension
     Dosage: 5 MILLIGRAM, QD (5 MG, QD), START DATE: 25-APR-2020
     Route: 048
     Dates: start: 20200425, end: 20200619
  28. XARELTO [Concomitant]
     Active Substance: RIVAROXABAN
     Indication: Atrial fibrillation
     Dosage: 20 MILLIGRAM, QD, 20 MG, QD
     Route: 048
     Dates: end: 20200417
  29. XARELTO [Concomitant]
     Active Substance: RIVAROXABAN
     Dosage: 20 MILLIGRAM, QD (20 MG, QD)
     Route: 048
     Dates: start: 20200425, end: 202006
  30. ELIQUIS [Concomitant]
     Active Substance: APIXABAN
     Indication: Atrial fibrillation
     Dosage: 10 MILLIGRAM, QD (5 MG, BID), START DATE: ??-DEC-2020
     Route: 048
     Dates: start: 202012
  31. SILAPO [Concomitant]
     Indication: Anaemia
     Dosage: 10000 INTERNATIONAL UNIT, PRN (10000 IU, PRN)
     Route: 042
     Dates: start: 201907
  32. ATORVASTATIN [Concomitant]
     Active Substance: ATORVASTATIN
     Indication: Acute myocardial infarction
     Dosage: 40 MILLIGRAM, QD (40 MG, QD)
     Route: 065

REACTIONS (13)
  - Ophthalmic herpes zoster [Recovered/Resolved]
  - Eye inflammation [Recovered/Resolved]
  - Acute kidney injury [Recovered/Resolved]
  - Duodenal ulcer [Recovered/Resolved]
  - Hypokalaemia [Recovered/Resolved]
  - Renal impairment [Recovered/Resolved]
  - Pneumonia [Recovered/Resolved]
  - Pyrexia [Recovered/Resolved]
  - Anaemia [Not Recovered/Not Resolved]
  - Infection [Recovered/Resolved]
  - Hyperuricaemia [Recovering/Resolving]
  - Oedema peripheral [Not Recovered/Not Resolved]
  - Inappropriate schedule of product administration [Unknown]

NARRATIVE: CASE EVENT DATE: 20200128
